FAERS Safety Report 10142814 (Version 1)
Quarter: 2014Q2

REPORT INFORMATION
  Report Type: Spontaneous
  Country: GB (occurrence: None)
  Receive Date: 20140428
  Receipt Date: 20140428
  Transmission Date: 20141212
  Serious: Yes (Other)
  Sender: FDA-Public Use
  Company Number: AUR-APL-2014-04879

PATIENT
  Age: 59 Year
  Sex: Male
  Weight: 82.55 kg

DRUGS (2)
  1. AMLODIPINE  (AMLODIPINE) [Suspect]
     Indication: BLOOD PRESSURE AMBULATORY
     Route: 048
     Dates: start: 20130206, end: 20140404
  2. ASPIRIN (ACETYLSALICYLIC ACID) [Concomitant]

REACTIONS (6)
  - Anxiety [None]
  - Depression [None]
  - Rhinorrhoea [None]
  - Productive cough [None]
  - Joint swelling [None]
  - Peripheral swelling [None]
